FAERS Safety Report 9841651 (Version 1)
Quarter: 2013Q4

REPORT INFORMATION
  Report Type: Spontaneous
  Country: US (occurrence: None)
  Receive Date: 20131219
  Receipt Date: 20131219
  Transmission Date: 20140711
  Serious: Yes (Hospitalization)
  Sender: FDA-Public Use
  Company Number: 163-20785-12113366

PATIENT
  Age: 80 Year
  Sex: Male

DRUGS (18)
  1. THALOMID [Suspect]
     Indication: PLASMA CELL MYELOMA
     Dosage: 50 MG, 1 IN 1 D, PO
     Route: 048
     Dates: start: 201207
  2. VELCADE (BORTEZOMIB) (INJECTION) [Concomitant]
  3. DEXAMETHASONE (DEXAMETHSAONE) [Concomitant]
  4. SLEEPING AIDE [Concomitant]
  5. BENADRYL (LIQUID) [Concomitant]
  6. ACYCLOVIR (ACICLOVIR) (ACICLOVIR) [Concomitant]
  7. ALLOPURINOL (ALLOPURINOL) [Concomitant]
  8. ASPIRIN (UNKNOWN) [Concomitant]
  9. CLARITIN (LORATADINE) (UNKNOWN) [Concomitant]
  10. LASIX (FUROSEMIDE) (UNKNOWN) [Concomitant]
  11. RENAL (NEPHROVITE) (CAPSULES) [Concomitant]
  12. TRADJENTA (LINAGLIPTIN) [Concomitant]
  13. VITAMIN B12 (CYANOCOBALAMIN) (UNKNOWN) [Concomitant]
  14. KEFLEX (CEFALEXIN MONOHYDRATE) (UNKNOWN) [Concomitant]
  15. COLACE [Concomitant]
  16. MIRALAX (MACROGOL) (UNKNOWN) [Concomitant]
  17. SENOKOT (SENNS FRUIT) (TABLETS) [Concomitant]
  18. NEPHROCAPS (NEPHROCAPS) (UNKNOWN) [Concomitant]

REACTIONS (4)
  - Plasma cell myeloma [None]
  - Anxiety [None]
  - Confusional state [None]
  - Tremor [None]
